FAERS Safety Report 8465631-0 (Version None)
Quarter: 2012Q2

REPORT INFORMATION
  Report Type: 
  Country: None (occurrence: None)
  Receive Date: 20120626
  Receipt Date: 20120618
  Transmission Date: 20120825
  Serious: Yes (Hospitalization, Other)
  Sender: FDA-Public Use
  Company Number: US-BAYER-2012-061170

PATIENT
  Age: 24 Year
  Sex: Female
  Weight: 95.692 kg

DRUGS (17)
  1. HYDROCHLOROTHIAZIDE [Concomitant]
     Dosage: 25 MG, UNK
     Route: 048
  2. ZOLOFT [Concomitant]
  3. LAMOTRIGINE [Concomitant]
     Dosage: 100 MG, DAILY
     Route: 048
  4. MIRTAZAPINE [Concomitant]
     Dosage: 30-100 MG, EVERY NIGHT
     Route: 048
  5. HYDROCODONE BITARTRATE + ACETAMINOPHEN [Concomitant]
     Dosage: 5-500 MG
     Route: 048
  6. POTASSIUM CHLORIDE [Concomitant]
     Dosage: 10 MEQ DAILY
     Route: 048
  7. ACETAMINOPHEN [Concomitant]
  8. YAZ [Suspect]
  9. SERTRALINE HYDROCHLORIDE [Concomitant]
     Dosage: 50 MG, DAILY
     Route: 048
  10. DESYREL [Concomitant]
  11. DROSPIRENONE AND ETHINYL ESTRADIOL [Suspect]
  12. RISPERIDONE [Concomitant]
     Dosage: 2 MG, UNK
     Route: 048
  13. TRAZODONE HCL [Concomitant]
     Dosage: 100 MG, EVERY NIGHT
     Route: 048
  14. IBUPROFEN [Concomitant]
  15. REMERON [Concomitant]
  16. POTASSIUM CHLORIDE [Concomitant]
  17. HYDROXZ PAM [Concomitant]
     Dosage: 25 MG, UNK
     Route: 048

REACTIONS (2)
  - PULMONARY EMBOLISM [None]
  - DEEP VEIN THROMBOSIS [None]
